FAERS Safety Report 5656210-9 (Version None)
Quarter: 2008Q1

REPORT INFORMATION
  Report Type: 
  Country: None (occurrence: None)
  Receive Date: 20080305
  Receipt Date: 20080219
  Transmission Date: 20080703
  Serious: Yes (Other)
  Sender: FDA-Public Use
  Company Number: PAR_02120_2008

PATIENT
  Age: 21 Year
  Sex: Male

DRUGS (4)
  1. IBUPROFEN (IBUPROFEN) [Suspect]
     Indication: DRUG USE FOR UNKNOWN INDICATION
     Dosage: 800 MG 1X ORAL
     Route: 048
     Dates: start: 20080128
  2. SUDAFED/00076302/ (SUDAFED PSEUDOEPHEDRINE HYDROCHLORIDE) (NOT SPECIFI [Suspect]
     Indication: DRUG USE FOR UNKNOWN INDICATION
     Dosage: 480-720 MG 1X
     Dates: start: 20080128
  3. ANTIHISTAMINES [Concomitant]
  4. ALCOHOL /00002101/ [Concomitant]

REACTIONS (5)
  - ALCOHOL POISONING [None]
  - DEHYDRATION [None]
  - DEPRESSION SUICIDAL [None]
  - MULTIPLE DRUG OVERDOSE [None]
  - TACHYCARDIA [None]
